FAERS Safety Report 6623873-0 (Version None)
Quarter: 2010Q1

REPORT INFORMATION
  Report Type: 
  Country: None (occurrence: None)
  Receive Date: 20100304
  Receipt Date: 20100218
  Transmission Date: 20100710
  Serious: Yes (Other)
  Sender: FDA-Public Use
  Company Number: 2010-0604

PATIENT
  Age: 35 Year
  Sex: Female

DRUGS (1)
  1. DYSPORT [Suspect]
     Indication: QUADRIPARESIS
     Dosage: 1500 UNITS (1500 UNITS, SINGLE CYCLE), PARENTERAL
     Route: 051

REACTIONS (4)
  - BOTULISM [None]
  - DYSARTHRIA [None]
  - DYSPHAGIA [None]
  - NEUROLOGICAL SYMPTOM [None]
